FAERS Safety Report 13386266 (Version 1)
Quarter: 2017Q1

REPORT INFORMATION
  Report Type: Spontaneous
  Country: US (occurrence: US)
  Receive Date: 20170330
  Receipt Date: 20170330
  Transmission Date: 20170429
  Serious: No
  Sender: FDA-Public Use
  Company Number: US-PFIZER INC-2017130150

PATIENT
  Sex: Female

DRUGS (1)
  1. XELJANZ XR [Suspect]
     Active Substance: TOFACITINIB CITRATE
     Dosage: 11 MG, DAILY

REACTIONS (8)
  - Condition aggravated [Unknown]
  - Joint range of motion decreased [Unknown]
  - Joint swelling [Unknown]
  - Joint stiffness [Unknown]
  - Soft tissue swelling [Unknown]
  - Arthralgia [Unknown]
  - Activities of daily living impaired [Unknown]
  - Synovitis [Unknown]
